FAERS Safety Report 8417450-9 (Version None)
Quarter: 2012Q2

REPORT INFORMATION
  Report Type: 
  Country: None (occurrence: None)
  Receive Date: 20120606
  Receipt Date: 20120530
  Transmission Date: 20120825
  Serious: Yes (Hospitalization)
  Sender: FDA-Public Use
  Company Number: PHHY2012TW046687

PATIENT
  Age: 32 Year
  Sex: Male

DRUGS (5)
  1. RISPERIDONE [Suspect]
     Indication: SCHIZOAFFECTIVE DISORDER
     Dosage: 4 MG, UNK
  2. PALIPERIDONE [Suspect]
     Dosage: 3 MG, UNK
  3. VENLAFAXINE [Concomitant]
     Indication: SCHIZOAFFECTIVE DISORDER
     Dosage: 150 MG, UNK
  4. LITHIUM [Concomitant]
     Indication: SCHIZOAFFECTIVE DISORDER
     Dosage: 300 MG, UNK
  5. BENZTROPINE MESYLATE [Concomitant]
     Indication: SCHIZOAFFECTIVE DISORDER

REACTIONS (15)
  - NEGATIVISM [None]
  - INCONTINENCE [None]
  - HYPERHIDROSIS [None]
  - DELIRIUM [None]
  - TREMOR [None]
  - MUSCLE RIGIDITY [None]
  - MUSCULOSKELETAL STIFFNESS [None]
  - DYSPHAGIA [None]
  - CONFUSIONAL STATE [None]
  - HYPERTENSION [None]
  - DYSPNOEA [None]
  - RESPIRATORY FAILURE [None]
  - NEUROLEPTIC MALIGNANT SYNDROME [None]
  - MUTISM [None]
  - AGITATION [None]
